FAERS Safety Report 7283635-0 (Version None)
Quarter: 2011Q1

REPORT INFORMATION
  Report Type: 
  Country: None (occurrence: None)
  Receive Date: 20110209
  Receipt Date: 20110202
  Transmission Date: 20110831
  Serious: Yes (Hospitalization)
  Sender: FDA-Public Use
  Company Number: B0698605A

PATIENT
  Sex: Male

DRUGS (1)
  1. SERETIDE [Suspect]
     Indication: ASTHMA
     Route: 048
     Dates: start: 20100901, end: 20100901

REACTIONS (2)
  - MUSCLE SPASMS [None]
  - RESTLESSNESS [None]
